FAERS Safety Report 9733619 (Version 2)
Quarter: 2013Q4

REPORT INFORMATION
  Report Type: Spontaneous
  Country: US (occurrence: US)
  Receive Date: 20131205
  Receipt Date: 20131210
  Transmission Date: 20140711
  Serious: Yes (Other)
  Sender: FDA-Public Use
  Company Number: CHPA2013US017688

PATIENT
  Age: 62 Year
  Sex: Female

DRUGS (11)
  1. VOLTAREN GEL [Suspect]
     Indication: BACK PAIN
     Dosage: 1/4 TSP, PRN
     Route: 061
     Dates: start: 20120815
  2. VOLTAREN GEL [Suspect]
     Indication: OFF LABEL USE
  3. LYSINE [Concomitant]
     Indication: SUPPLEMENTATION THERAPY
  4. FISH OIL [Concomitant]
     Indication: SUPPLEMENTATION THERAPY
  5. AZEO PANGEN [Concomitant]
     Indication: SUPPLEMENTATION THERAPY
  6. VITAMIN B12 [Concomitant]
     Indication: SUPPLEMENTATION THERAPY
  7. MAGNESIUM GLYCINATE [Concomitant]
     Indication: SUPPLEMENTATION THERAPY
  8. MANGANESE [Concomitant]
     Indication: SUPPLEMENTATION THERAPY
  9. ESTRO BALANCE [Concomitant]
     Indication: SUPPLEMENTATION THERAPY
  10. 5 HTP                              /07186501/ [Concomitant]
     Indication: SUPPLEMENTATION THERAPY
  11. VITAMIN C [Concomitant]
     Indication: SUPPLEMENTATION THERAPY

REACTIONS (7)
  - Gastrointestinal fungal infection [Recovered/Resolved]
  - Vitamin D deficiency [Not Recovered/Not Resolved]
  - Sleep disorder [Not Recovered/Not Resolved]
  - Fatigue [Not Recovered/Not Resolved]
  - Drug administered at inappropriate site [Unknown]
  - Inappropriate schedule of drug administration [Unknown]
  - Wrong technique in drug usage process [Unknown]
